FAERS Safety Report 7526264-3 (Version None)
Quarter: 2011Q2

REPORT INFORMATION
  Report Type: 
  Country: None (occurrence: None)
  Receive Date: 20110606
  Receipt Date: 20110526
  Transmission Date: 20111010
  Serious: Yes (Other)
  Sender: FDA-Public Use
  Company Number: US-ASTRAZENECA-2011SE32541

PATIENT
  Sex: Male

DRUGS (2)
  1. SYMBICORT [Suspect]
     Indication: CHRONIC OBSTRUCTIVE PULMONARY DISEASE
     Route: 055
     Dates: end: 20100301
  2. SYMBICORT [Suspect]
     Indication: ASTHMA
     Route: 055
     Dates: end: 20100301

REACTIONS (2)
  - TACHYCARDIA [None]
  - HEART RATE IRREGULAR [None]
